FAERS Safety Report 18198118 (Version 2)
Quarter: 2021Q2

REPORT INFORMATION
  Report Type: Spontaneous
  Country: US (occurrence: US)
  Receive Date: 20200826
  Receipt Date: 20210517
  Transmission Date: 20210717
  Serious: No
  Sender: FDA-Public Use
  Company Number: US-HORIZON-TEP-1562-2020

PATIENT
  Sex: Male
  Weight: 148 kg

DRUGS (2)
  1. TEPEZZA [Suspect]
     Active Substance: TEPROTUMUMAB-TRBW
     Indication: TOXIC GOITRE
     Dosage: 2960 MG, EVERY 3 WEEKS
     Route: 042
     Dates: start: 20200725
  2. TRIAMTERENE AND HYDROCHLOROTHIAZIDE [Concomitant]
     Active Substance: HYDROCHLOROTHIAZIDE\TRIAMTERENE
     Indication: PRODUCT USED FOR UNKNOWN INDICATION
     Dosage: 37.5MG?25MG CAPSULE

REACTIONS (8)
  - Nail disorder [Unknown]
  - Abdominal discomfort [Unknown]
  - Alopecia [Unknown]
  - Fatigue [Unknown]
  - Pain [Unknown]
  - Diarrhoea [Unknown]
  - Muscle spasms [Unknown]
  - Ageusia [Unknown]
